FAERS Safety Report 15317069 (Version 1)
Quarter: 2018Q3

REPORT INFORMATION
  Report Type: Spontaneous
  Country: NL (occurrence: NL)
  Receive Date: 20180824
  Receipt Date: 20180824
  Transmission Date: 20181010
  Serious: Yes (Other)
  Sender: FDA-Public Use
  Company Number: NL-PFIZER INC-2018337530

PATIENT
  Age: 42 Year
  Sex: Female

DRUGS (2)
  1. CHAMPIX [Suspect]
     Active Substance: VARENICLINE TARTRATE
     Indication: SMOKING CESSATION THERAPY
     Dosage: 1 MG, 2X/DAY
     Route: 048
     Dates: start: 20180710, end: 20180720
  2. MICROGYNON [ETHINYLESTRADIOL;LEVONORGESTREL] [Concomitant]

REACTIONS (4)
  - Psychotic symptom [Recovered/Resolved]
  - Suicidal ideation [Recovered/Resolved]
  - Head banging [Recovered/Resolved]
  - Aggression [Recovered/Resolved]

NARRATIVE: CASE EVENT DATE: 20180718
